FAERS Safety Report 8226822-7 (Version None)
Quarter: 2012Q1

REPORT INFORMATION
  Report Type: 
  Country: None (occurrence: None)
  Receive Date: 20120322
  Receipt Date: 20120312
  Transmission Date: 20120608
  Serious: Yes (Hospitalization, Other)
  Sender: FDA-Public Use
  Company Number: US-BAYER-2011-110392

PATIENT
  Age: 42 Year
  Sex: Female
  Weight: 63 kg

DRUGS (8)
  1. YASMIN [Suspect]
     Dosage: UNK
     Dates: start: 20060101, end: 20090101
  2. ACETAMINOPHEN W/ CODEINE [Concomitant]
     Dosage: UNK
     Route: 048
     Dates: start: 20090922
  3. OMEPRAZOLE [Concomitant]
     Dosage: 20MG
     Route: 048
     Dates: start: 20090922
  4. CYMBALTA [Concomitant]
     Dosage: 30 MG, UNK
     Route: 048
     Dates: start: 20090922
  5. TRAMADOL HCL [Concomitant]
     Dosage: 50 MG, UNK
     Route: 048
     Dates: start: 20091020
  6. YAZ [Suspect]
     Dosage: UNK
     Dates: start: 20060101, end: 20090101
  7. DROSPIRENONE AND ETHINYL ESTRADIOL [Suspect]
     Dosage: UNK
     Dates: start: 20060101, end: 20090101
  8. SKELAXIN [Concomitant]
     Dosage: 800 MG, UNK
     Route: 048
     Dates: start: 20091020

REACTIONS (10)
  - ANXIETY [None]
  - DEEP VEIN THROMBOSIS [None]
  - PAIN [None]
  - MYOCARDIAL INFARCTION [None]
  - CEREBROVASCULAR ACCIDENT [None]
  - DEPRESSION [None]
  - GALLBLADDER DISORDER [None]
  - PULMONARY EMBOLISM [None]
  - INJURY [None]
  - ANHEDONIA [None]
